FAERS Safety Report 9392410 (Version 1)
Quarter: 2013Q3

REPORT INFORMATION
  Report Type: Spontaneous
  Country: US (occurrence: None)
  Receive Date: 20130708
  Receipt Date: 20130708
  Transmission Date: 20140515
  Serious: No
  Sender: FDA-Public Use
  Company Number: None

PATIENT
  Age: 34 Year
  Sex: Female
  Weight: 80.5 kg

DRUGS (1)
  1. MAGNEVIST [Suspect]
     Dosage: FREQUENCE 1
     Route: 042

REACTIONS (1)
  - Contrast media allergy [None]
